FAERS Safety Report 7351861-8 (Version None)
Quarter: 2011Q1

REPORT INFORMATION
  Report Type: 
  Country: None (occurrence: None)
  Receive Date: 20110315
  Receipt Date: 20110307
  Transmission Date: 20110831
  Serious: Yes (Other)
  Sender: FDA-Public Use
  Company Number: CA-JNJFOC-20101100123

PATIENT
  Sex: Female

DRUGS (2)
  1. LEVAQUIN [Suspect]
     Indication: POST PROCEDURAL CELLULITIS
     Route: 065
  2. PAIN MEDICATION [Concomitant]
     Indication: PAIN
     Route: 065

REACTIONS (3)
  - ARTHRITIS [None]
  - TENDONITIS [None]
  - FATIGUE [None]
